FAERS Safety Report 4432302-7 (Version None)
Quarter: 2004Q3

REPORT INFORMATION
  Report Type: 
  Country: None (occurrence: None)
  Receive Date: 20040820
  Receipt Date: 20040806
  Transmission Date: 20050211
  Serious: Yes (Life-Threatening, Hospitalization)
  Sender: FDA-Public Use
  Company Number: MC200400064

PATIENT
  Age: 65 Year
  Sex: Female
  Weight: 124.7 kg

DRUGS (9)
  1. ANGIOMAX [Suspect]
     Indication: ANTICOAGULANT THERAPY
     Dosage: SEE IMAGE
     Route: 040
     Dates: start: 20040504, end: 20040504
  2. ANGIOMAX [Suspect]
     Indication: STENT PLACEMENT
     Dosage: SEE IMAGE
     Route: 040
     Dates: start: 20040504, end: 20040504
  3. ANGIOMAX [Suspect]
     Indication: ANTICOAGULANT THERAPY
     Dosage: SEE IMAGE
     Route: 040
     Dates: start: 20040602, end: 20040602
  4. ANGIOMAX [Suspect]
     Indication: STENT PLACEMENT
     Dosage: SEE IMAGE
     Route: 040
     Dates: start: 20040602, end: 20040602
  5. EPTIFIBATIDE (EPTIFIBATIDE) [Concomitant]
  6. HEPARIN [Concomitant]
  7. MIDAZOLAM HCL [Concomitant]
  8. FENTANYL [Concomitant]
  9. NTG (GLYCERYL TRINITRATE) [Concomitant]

REACTIONS (2)
  - CORONARY ARTERY DISSECTION [None]
  - CORONARY ARTERY THROMBOSIS [None]
